FAERS Safety Report 19585024 (Version 2)
Quarter: 2021Q3

REPORT INFORMATION
  Report Type: Report from Study
  Country: DE (occurrence: DE)
  Receive Date: 20210720
  Receipt Date: 20210809
  Transmission Date: 20211014
  Serious: Yes (Hospitalization)
  Sender: FDA-Public Use
  Company Number: NVSC2021DE158738

PATIENT
  Sex: Female
  Weight: 74 kg

DRUGS (12)
  1. PANTOPRAZOLE [Concomitant]
     Active Substance: PANTOPRAZOLE
     Indication: GASTRITIS PROPHYLAXIS
     Dosage: 40 MG, QD
     Route: 048
     Dates: start: 2012
  2. CHOLECALCIFEROL [Concomitant]
     Active Substance: CHOLECALCIFEROL
     Indication: OSTEOPOROSIS PROPHYLAXIS
     Dosage: 20000 IU, Q2W (EVERY 14 DAYS)
     Route: 065
     Dates: start: 2016
  3. NOVAMINSULFON [Concomitant]
     Active Substance: METAMIZOLE
     Indication: PSORIATIC ARTHROPATHY
     Dosage: 50 MG, PRN (AS NEEDED)
     Route: 048
  4. COSENTYX [Suspect]
     Active Substance: SECUKINUMAB
     Indication: PSORIATIC ARTHROPATHY
     Dosage: UNK, ONCE/SINGLE
     Route: 058
  5. PREDNISOLONE. [Concomitant]
     Active Substance: PREDNISOLONE
     Indication: PSORIATIC ARTHROPATHY
     Dosage: 5 MG, QD
     Route: 048
     Dates: start: 20210420
  6. CARBAMAZEPINE. [Concomitant]
     Active Substance: CARBAMAZEPINE
     Indication: EPILEPSY
     Dosage: 600 MG, BID
     Route: 048
     Dates: start: 1990
  7. FENTANYL. [Concomitant]
     Active Substance: FENTANYL
     Indication: CHRONIC IDIOPATHIC PAIN SYNDROME
     Dosage: 100 MG /100 ?G, EVERY THIRD DAY
     Route: 062
     Dates: start: 2015
  8. CELECOXIB. [Concomitant]
     Active Substance: CELECOXIB
     Indication: PSORIATIC ARTHROPATHY
     Dosage: 200 MG, BID
     Route: 048
     Dates: start: 2017
  9. MORPHINE SULFATE. [Concomitant]
     Active Substance: MORPHINE SULFATE
     Indication: CHRONIC IDIOPATHIC PAIN SYNDROME
     Dosage: 20 MG, TID
     Route: 048
     Dates: start: 2010
  10. OXAZEPAM. [Concomitant]
     Active Substance: OXAZEPAM
     Indication: ANXIETY
     Dosage: 10 MG, BID
     Route: 048
     Dates: start: 2017
  11. NOVAMINSULFON [Concomitant]
     Active Substance: METAMIZOLE
     Indication: CHRONIC IDIOPATHIC PAIN SYNDROME
  12. COSENTYX [Suspect]
     Active Substance: SECUKINUMAB
     Dosage: 300 MG, Q4W
     Route: 058
     Dates: start: 202010

REACTIONS (2)
  - Intestinal atresia [Recovered/Resolved]
  - Intestinal atresia [Recovered/Resolved]

NARRATIVE: CASE EVENT DATE: 20210426
